FAERS Safety Report 24325136 (Version 2)
Quarter: 2024Q3

REPORT INFORMATION
  Report Type: Spontaneous
  Country: GB (occurrence: GB)
  Receive Date: 20240916
  Receipt Date: 20240920
  Transmission Date: 20241017
  Serious: Yes (Other)
  Sender: DR REDDYS
  Company Number: GB-UKI-SPO/GBR/24/0013397

PATIENT
  Age: 39 Year
  Sex: Male

DRUGS (1)
  1. PREGABALIN [Suspect]
     Active Substance: PREGABALIN
     Indication: Product used for unknown indication
     Route: 048

REACTIONS (6)
  - Drug dependence [Unknown]
  - Drug abuse [Unknown]
  - Alcohol interaction [Unknown]
  - Suicide attempt [Unknown]
  - Product administered from unauthorised provider [Unknown]
  - Nephropathy toxic [Unknown]
